FAERS Safety Report 26074399 (Version 3)
Quarter: 2025Q4

REPORT INFORMATION
  Report Type: Spontaneous
  Country: JP (occurrence: JP)
  Receive Date: 20251121
  Receipt Date: 20251217
  Transmission Date: 20260117
  Serious: Yes (Other)
  Sender: DAIICHI
  Company Number: JP-DSJP-DS-2025-177868-JP

PATIENT
  Age: 76 Year
  Sex: Female
  Weight: 42 kg

DRUGS (13)
  1. ENHERTU [Suspect]
     Active Substance: FAM-TRASTUZUMAB DERUXTECAN-NXKI
     Indication: HER2 positive gastric cancer
     Dosage: UNK
     Route: 041
  2. MORPHINE HYDROCHLORIDE [Suspect]
     Active Substance: MORPHINE HYDROCHLORIDE
     Indication: Cancer pain
     Dosage: 20MG/DAY
     Route: 058
     Dates: start: 20230405, end: 202305
  3. MORPHINE HYDROCHLORIDE [Suspect]
     Active Substance: MORPHINE HYDROCHLORIDE
     Dosage: 50MG/DAY
     Route: 058
     Dates: start: 202305, end: 202305
  4. MORPHINE HYDROCHLORIDE [Suspect]
     Active Substance: MORPHINE HYDROCHLORIDE
     Dosage: 70MG
     Route: 058
     Dates: start: 20230519, end: 2023
  5. OPDIVO [Concomitant]
     Active Substance: NIVOLUMAB
     Indication: HER2 positive gastric cancer
     Dosage: 240MG/DAY
     Route: 065
     Dates: start: 20230516
  6. DICLOFENAC SODIUM [Concomitant]
     Active Substance: DICLOFENAC SODIUM
     Indication: Cancer pain
     Dosage: 150MG/DAY
     Dates: start: 20230512
  7. FENTANYL [Concomitant]
     Active Substance: FENTANYL
     Indication: Cancer pain
     Dosage: 2MG/DAY
     Route: 065
  8. HYDROMORPHONE HYDROCHLORIDE [Concomitant]
     Active Substance: HYDROMORPHONE HYDROCHLORIDE
     Indication: Cancer pain
     Dosage: 1MG
     Route: 065
  9. SOYBEAN OIL [Concomitant]
     Active Substance: SOYBEAN OIL
     Indication: Gastric cancer
     Dosage: 1P
     Route: 065
     Dates: start: 20230421
  10. AMINO ACIDS\DEXTROSE\ELECTROLYTES NOS\MINERALS\VITAMINS [Concomitant]
     Active Substance: AMINO ACIDS\DEXTROSE\ELECTROLYTES NOS\MINERALS\VITAMINS
     Indication: Gastric cancer
     Dosage: 1P
     Route: 065
     Dates: start: 20230409
  11. SODIUM CHLORIDE [Concomitant]
     Active Substance: SODIUM CHLORIDE
     Indication: Gastric cancer
     Dosage: 1A
     Route: 065
     Dates: start: 20230409
  12. FAMOTIDINE [Concomitant]
     Active Substance: FAMOTIDINE
     Indication: Gastric cancer
     Dosage: 1A
     Dates: start: 20230404
  13. HISHIPHAGEN [Concomitant]
     Indication: Gastric cancer
     Dosage: 1A
     Route: 065
     Dates: start: 20230510

REACTIONS (5)
  - Delirium [Recovering/Resolving]
  - Hallucination [Recovered/Resolved]
  - Nausea [Recovered/Resolved]
  - Decreased appetite [Unknown]
  - Inadequate analgesia [Unknown]

NARRATIVE: CASE EVENT DATE: 20230517
